FAERS Safety Report 24433828 (Version 1)
Quarter: 2024Q4

REPORT INFORMATION
  Report Type: Spontaneous
  Country: US (occurrence: US)
  Receive Date: 20241014
  Receipt Date: 20241014
  Transmission Date: 20250115
  Serious: No
  Sender: SPROUT PHARMACEUTICALS, INC.
  Company Number: US-Sprout Pharmaceuticals, Inc.-2024SP000043

PATIENT
  Age: 32 Year
  Sex: Female
  Weight: 47.67 kg

DRUGS (6)
  1. ADDYI [Suspect]
     Active Substance: FLIBANSERIN
     Indication: Libido decreased
     Dosage: RX # 8663663
     Route: 048
     Dates: start: 20240109
  2. ADDYI [Suspect]
     Active Substance: FLIBANSERIN
     Indication: Libido decreased
  3. MIRALAX [Concomitant]
     Active Substance: POLYETHYLENE GLYCOL 3350
     Indication: Constipation
  4. LIPOTROPIC B12 [Concomitant]
     Indication: Insomnia
  5. VICTOZA [Concomitant]
     Active Substance: LIRAGLUTIDE
     Indication: Weight control
  6. ONDANSETRON [Concomitant]
     Active Substance: ONDANSETRON
     Indication: Nausea

REACTIONS (2)
  - Middle insomnia [Not Recovered/Not Resolved]
  - Drug ineffective [Not Recovered/Not Resolved]

NARRATIVE: CASE EVENT DATE: 20240101
